FAERS Safety Report 15258301 (Version 1)
Quarter: 2018Q3

REPORT INFORMATION
  Report Type: Spontaneous
  Country: CA (occurrence: CA)
  Receive Date: 20180809
  Receipt Date: 20180809
  Transmission Date: 20181010
  Serious: Yes (Hospitalization)
  Sender: FDA-Public Use
  Company Number: CA-ROCHE-920800114001

PATIENT
  Age: 67 Year
  Sex: Male

DRUGS (5)
  1. HALOPERIDOL. [Concomitant]
     Active Substance: HALOPERIDOL
     Indication: AGGRESSION
     Route: 030
  2. CHLORDIAZEPOXIDE. [Suspect]
     Active Substance: CHLORDIAZEPOXIDE
     Indication: AGITATION
     Route: 030
  3. ALPRAZOLAM. [Concomitant]
     Active Substance: ALPRAZOLAM
     Indication: AGGRESSION
     Route: 048
  4. DIAZEPAM. [Suspect]
     Active Substance: DIAZEPAM
     Indication: AGITATION
     Dosage: 5?10 MG ON 6 OCCASIONS WITHIN TIMEFRAME OF 24?72 HOURS.
     Route: 030
  5. TRIFLUOPERAZINE [Concomitant]
     Active Substance: TRIFLUOPERAZINE\TRIFLUOPERAZINE HYDROCHLORIDE
     Indication: AGGRESSION
     Route: 048

REACTIONS (2)
  - Toxic encephalopathy [Unknown]
  - Coma [Recovering/Resolving]
